FAERS Safety Report 5476734-7 (Version None)
Quarter: 2007Q4

REPORT INFORMATION
  Report Type: 
  Country: None (occurrence: None)
  Receive Date: 20071002
  Receipt Date: 20070917
  Transmission Date: 20080405
  Serious: Yes (Other)
  Sender: FDA-Public Use
  Company Number: 220016M07USA

PATIENT
  Age: 11 Year
  Sex: Male

DRUGS (3)
  1. SAIZEN [Suspect]
     Indication: GROWTH HORMONE DEFICIENCY
     Dosage: 1.2 MG, 1 IN 1 DAYS
  2. PREDNISONE [Suspect]
     Dosage: 5 MG, 1 IN 1 DAYS
  3. CORTEF (HYDROCORTISONE /00028601) [Suspect]

REACTIONS (1)
  - SQUAMOUS CELL CARCINOMA [None]
